FAERS Safety Report 11156441 (Version 2)
Quarter: 2015Q2

REPORT INFORMATION
  Report Type: Spontaneous
  Country: PL (occurrence: PL)
  Receive Date: 20150602
  Receipt Date: 20150622
  Transmission Date: 20150821
  Serious: Yes (Other)
  Sender: FDA-Public Use
  Company Number: PL-ELI_LILLY_AND_COMPANY-PL201505010427

PATIENT
  Age: 68 Year
  Sex: Female

DRUGS (2)
  1. HUMALOG [Suspect]
     Active Substance: INSULIN LISPRO
     Indication: DIABETES MELLITUS
     Dosage: 30 U, QD
     Route: 065
     Dates: start: 2003
  2. HUMULIN N [Suspect]
     Active Substance: INSULIN HUMAN
     Indication: PRODUCT USED FOR UNKNOWN INDICATION
     Dosage: 30 U, EACH EVENING
     Route: 065

REACTIONS (10)
  - Ovarian cancer [Unknown]
  - Blood glucose increased [Unknown]
  - Mental disorder [Unknown]
  - Hypoaesthesia [Unknown]
  - Small intestine carcinoma [Unknown]
  - Pulmonary embolism [Unknown]
  - Hyperglycaemia [Unknown]
  - Blood glucose fluctuation [Unknown]
  - Malaise [Unknown]
  - Drug dose omission [Unknown]

NARRATIVE: CASE EVENT DATE: 2013
